FAERS Safety Report 7362739-8 (Version None)
Quarter: 2011Q1

REPORT INFORMATION
  Report Type: 
  Country: None (occurrence: None)
  Receive Date: 20110321
  Receipt Date: 20110314
  Transmission Date: 20110831
  Serious: No
  Sender: FDA-Public Use
  Company Number: US-BIOGENIDEC-2010BI008732

PATIENT
  Age: 53 Year
  Sex: Male

DRUGS (1)
  1. TYSABRI [Suspect]
     Indication: MULTIPLE SCLEROSIS
     Route: 042
     Dates: start: 20100106

REACTIONS (5)
  - MUSCLE SPASMS [None]
  - HYPERHIDROSIS [None]
  - HEADACHE [None]
  - FATIGUE [None]
  - IRRITABILITY [None]
